FAERS Safety Report 11559516 (Version 1)
Quarter: 2015Q3

REPORT INFORMATION
  Report Type: Spontaneous
  Country: CH (occurrence: CH)
  Receive Date: 20150928
  Receipt Date: 20150928
  Transmission Date: 20151125
  Serious: Yes (Other)
  Sender: FDA-Public Use
  Company Number: CH-ELI_LILLY_AND_COMPANY-CH201509000161

PATIENT
  Age: 54 Year
  Sex: Male
  Weight: 62 kg

DRUGS (15)
  1. OLANZAPINE. [Suspect]
     Active Substance: OLANZAPINE
     Dosage: 15 MG, QD
     Route: 048
     Dates: start: 20150521, end: 20150524
  2. VALIUM [Suspect]
     Active Substance: DIAZEPAM
     Indication: AGITATION
     Dosage: 30 MG, PRN
     Route: 048
     Dates: end: 20150501
  3. TRANXILIUM [Concomitant]
     Active Substance: CLORAZEPATE DIPOTASSIUM
     Dosage: 35 MG, QD
     Route: 048
  4. OLANZAPINE. [Suspect]
     Active Substance: OLANZAPINE
     Indication: SCHIZOPHRENIA, PARANOID TYPE
     Dosage: 20 MG, QD
     Route: 048
     Dates: start: 201504, end: 20150510
  5. OLANZAPINE. [Suspect]
     Active Substance: OLANZAPINE
     Dosage: 10 MG, SINGLE
     Route: 048
     Dates: start: 20150511, end: 20150511
  6. SOLIAN [Suspect]
     Active Substance: AMISULPRIDE
     Indication: SCHIZOPHRENIA, PARANOID TYPE
     Dosage: 200 MG, QD
     Route: 048
     Dates: end: 201504
  7. OLANZAPINE. [Suspect]
     Active Substance: OLANZAPINE
     Dosage: 20 MG, QD
     Route: 048
     Dates: start: 20150525, end: 20150707
  8. VALIUM [Suspect]
     Active Substance: DIAZEPAM
     Dosage: 30 MG, QD
     Route: 048
     Dates: start: 20150501, end: 20150510
  9. TRANXILIUM [Concomitant]
     Active Substance: CLORAZEPATE DIPOTASSIUM
     Indication: PRODUCT USED FOR UNKNOWN INDICATION
     Dosage: 25 MG, QD
     Route: 048
     Dates: start: 20150521
  10. OLANZAPINE. [Suspect]
     Active Substance: OLANZAPINE
     Dosage: 10 MG, QD
     Route: 048
     Dates: start: 20150708, end: 20150721
  11. VALIUM [Suspect]
     Active Substance: DIAZEPAM
     Dosage: 20 MG, SINGLE
     Route: 048
     Dates: start: 20150511, end: 20150511
  12. MAG 2                              /01486821/ [Concomitant]
     Indication: PRODUCT USED FOR UNKNOWN INDICATION
     Dosage: 1 DF, BID
     Route: 048
     Dates: start: 20150401
  13. GUTRON [Concomitant]
     Active Substance: MIDODRINE
     Indication: PRODUCT USED FOR UNKNOWN INDICATION
     Dosage: UNK UNK, PRN
     Route: 065
     Dates: start: 20150501, end: 20150522
  14. VALIUM [Suspect]
     Active Substance: DIAZEPAM
     Dosage: 25 MG, UNKNOWN
     Route: 048
     Dates: start: 20150512, end: 20150521
  15. TAMSULOSIN [Concomitant]
     Active Substance: TAMSULOSIN
     Indication: PRODUCT USED FOR UNKNOWN INDICATION
     Dosage: .4 MG, QD
     Route: 048

REACTIONS (23)
  - Dyskinesia [Unknown]
  - Vitamin D deficiency [Unknown]
  - Calculus urinary [Unknown]
  - Wolff-Parkinson-White syndrome [Unknown]
  - Hypokalaemia [Recovered/Resolved]
  - Faecaloma [Unknown]
  - Tardive dyskinesia [Unknown]
  - Rhabdomyolysis [Recovered/Resolved]
  - Polydipsia psychogenic [Unknown]
  - Malnutrition [Unknown]
  - Haematuria [Unknown]
  - Hyponatraemia [Recovered/Resolved]
  - Urinary tract infection [Unknown]
  - Coronary artery disease [Unknown]
  - Akinesia [Unknown]
  - Prostatitis [Unknown]
  - Fall [Unknown]
  - Pyelonephritis chronic [Unknown]
  - Benign prostatic hyperplasia [Unknown]
  - Hypophosphataemia [Unknown]
  - Constipation [Unknown]
  - Alanine aminotransferase increased [Recovered/Resolved]
  - Aspartate aminotransferase increased [Recovered/Resolved]

NARRATIVE: CASE EVENT DATE: 201505
